FAERS Safety Report 7958295-3 (Version None)
Quarter: 2011Q4

REPORT INFORMATION
  Report Type: 
  Country: None (occurrence: None)
  Receive Date: 20111205
  Receipt Date: 20111128
  Transmission Date: 20120403
  Serious: Yes (Other)
  Sender: FDA-Public Use
  Company Number: US-AMGEN-USASP2011062913

PATIENT
  Sex: Female

DRUGS (2)
  1. ENBREL [Suspect]
     Indication: RHEUMATOID ARTHRITIS
     Dosage: 50 MG, QWK
     Dates: start: 20100108, end: 20110901
  2. MYCOPHENOLATE MOFETIL [Concomitant]
     Dosage: UNK

REACTIONS (4)
  - MIXED CONNECTIVE TISSUE DISEASE [None]
  - ANGIOEDEMA [None]
  - RHEUMATOID ARTHRITIS [None]
  - URTICARIA [None]
